FAERS Safety Report 16971589 (Version 1)
Quarter: 2019Q4

REPORT INFORMATION
  Report Type: Spontaneous
  Country: US (occurrence: US)
  Receive Date: 20191029
  Receipt Date: 20191029
  Transmission Date: 20200122
  Serious: No
  Sender: FDA-Public Use
  Company Number: US-PARATEK PHARMACEUTICALS, INC.-2019PTK00103

PATIENT
  Age: 76 Year
  Sex: Female
  Weight: 74.38 kg

DRUGS (4)
  1. NUZYRA [Suspect]
     Active Substance: OMADACYCLINE
     Dosage: 300 MG, 1X/DAY, WITHOUT FOOD
     Route: 048
     Dates: start: 20190919, end: 20190921
  2. NUZYRA [Suspect]
     Active Substance: OMADACYCLINE
     Dosage: 150 MG, ONCE
     Route: 048
     Dates: start: 20190922, end: 20190922
  3. NUZYRA [Suspect]
     Active Substance: OMADACYCLINE
     Indication: PNEUMONIA
     Dosage: 450 MG, 1X/DAY
     Route: 048
     Dates: start: 20190918, end: 20190918
  4. UNSPECIFED HIGH BLOOD PRESSURE MEDICATION [Concomitant]

REACTIONS (3)
  - Pain [Recovered/Resolved]
  - Urticaria [Recovering/Resolving]
  - Drug dose titration not performed [Recovered/Resolved]

NARRATIVE: CASE EVENT DATE: 201909
